FAERS Safety Report 5219853-2 (Version None)
Quarter: 2007Q1

REPORT INFORMATION
  Report Type: 
  Country: None (occurrence: None)
  Receive Date: 20070125
  Receipt Date: 20060811
  Transmission Date: 20070707
  Serious: Yes (Hospitalization)
  Sender: FDA-Public Use
  Company Number: DE-PFIZER INC-2007004839

PATIENT
  Sex: Female

DRUGS (1)
  1. AROMASIN [Suspect]
     Indication: BREAST CANCER
     Dosage: DAILY DOSE:25MG-FREQ:DAILY
     Route: 048
     Dates: start: 20030630, end: 20040827

REACTIONS (1)
  - CHOLELITHIASIS [None]
